FAERS Safety Report 9486446 (Version 1)
Quarter: 2013Q3

REPORT INFORMATION
  Report Type: Spontaneous
  Country: US (occurrence: US)
  Receive Date: 20130829
  Receipt Date: 20130829
  Transmission Date: 20140515
  Serious: Yes (Hospitalization)
  Sender: FDA-Public Use
  Company Number: US-BAYER-2013-104400

PATIENT
  Age: 26 Year
  Sex: Female

DRUGS (5)
  1. YAZ [Suspect]
  2. FLINTSTONE VITAMINS W/IRON [Concomitant]
     Dosage: UNK
     Dates: start: 20100115
  3. EFFEXOR XR [Concomitant]
     Dosage: UNK
     Dates: start: 20100115
  4. LASIX [Concomitant]
  5. FRAGMIN [Concomitant]

REACTIONS (1)
  - Deep vein thrombosis [Recovered/Resolved]
